FAERS Safety Report 5487481-X (Version None)
Quarter: 2007Q4

REPORT INFORMATION
  Report Type: 
  Country: None (occurrence: None)
  Receive Date: 20071016
  Receipt Date: 20071004
  Transmission Date: 20080405
  Serious: Yes (Other)
  Sender: FDA-Public Use
  Company Number: IT-PFIZER INC-2007082784

PATIENT
  Sex: Male

DRUGS (2)
  1. CABERGOLINE [Suspect]
     Indication: PARKINSON'S DISEASE
     Route: 048
     Dates: start: 20030701, end: 20070701
  2. SINEMET [Concomitant]
     Dates: start: 20040601, end: 20070924

REACTIONS (1)
  - PATHOLOGICAL GAMBLING [None]
